FAERS Safety Report 5844290-7 (Version None)
Quarter: 2008Q3

REPORT INFORMATION
  Report Type: 
  Country: None (occurrence: None)
  Receive Date: 20080731
  Receipt Date: 20080427
  Transmission Date: 20090109
  Serious: No
  Sender: FDA-Public Use
  Company Number: US200804006877

PATIENT
  Age: 74 Year
  Sex: Male

DRUGS (11)
  1. BYETTA [Suspect]
     Indication: TYPE 2 DIABETES MELLITUS
     Dosage: 5 UG, 2/D, SUBCUTANEOUS
     Route: 058
     Dates: start: 20080426
  2. EXENATIDE PEN, DISPOSABLE DEVICE (EXENATIDE PEN) PEN,DISPOSABLE [Concomitant]
  3. GLIMEPIRIDE [Concomitant]
  4. GABAPENTIN [Concomitant]
  5. ALPRAZOLAM [Concomitant]
  6. FINASTERIDE [Concomitant]
  7. TERAZOSIN HCL [Concomitant]
  8. LISINOPRIL [Concomitant]
  9. ZETIA [Concomitant]
  10. ISOSORBIDE (ISOSORBIDE) [Concomitant]
  11. FUROSEMIDE [Concomitant]

REACTIONS (2)
  - DIZZINESS [None]
  - MUSCLE SPASMS [None]
